FAERS Safety Report 11358858 (Version 1)
Quarter: 2015Q3

REPORT INFORMATION
  Report Type: Spontaneous
  Country: US (occurrence: None)
  Receive Date: 20150710
  Receipt Date: 20150710
  Transmission Date: 20151125
  Serious: Yes (Other)
  Sender: FDA-Public Use
  Company Number: 1460590

PATIENT
  Sex: Female

DRUGS (4)
  1. CELLCEPT [Suspect]
     Active Substance: MYCOPHENOLATE MOFETIL\MYCOPHENOLATE MOFETIL HYDROCHLORIDE
     Indication: MYOPATHY
     Dosage: 1 CAPSULE A DAY THEN  2 CAPSULES AS INSTRUCTED (1 IN 1 D),UNKNOWN
     Dates: start: 20140820
  2. PROZAC [Concomitant]
     Active Substance: FLUOXETINE HYDROCHLORIDE
  3. TRAMADOL. [Concomitant]
     Active Substance: TRAMADOL
  4. PREDNISONE. [Concomitant]
     Active Substance: PREDNISONE

REACTIONS (13)
  - Dysuria [None]
  - Dyspnoea [None]
  - Influenza like illness [None]
  - Chest pain [None]
  - Headache [None]
  - Furuncle [None]
  - Pain [None]
  - Asthenia [None]
  - Infection [None]
  - Muscle spasms [None]
  - Peripheral swelling [None]
  - Confusional state [None]
  - Oropharyngeal pain [None]
